FAERS Safety Report 15342331 (Version 1)
Quarter: 2018Q3

REPORT INFORMATION
  Report Type: Report from Study
  Country: AU (occurrence: AU)
  Receive Date: 20180902
  Receipt Date: 20180902
  Transmission Date: 20181010
  Serious: Yes (Death)
  Sender: FDA-Public Use
  Company Number: PHHY2018AU085091

PATIENT
  Age: 84 Year
  Sex: Female

DRUGS (1)
  1. SANDOSTATIN LAR DEPOT [Suspect]
     Active Substance: OCTREOTIDE ACETATE
     Indication: CARCINOID SYNDROME
     Dosage: 30 MG, QMO
     Route: 030

REACTIONS (1)
  - Death [Fatal]

NARRATIVE: CASE EVENT DATE: 20180824
